FAERS Safety Report 6509410-X (Version None)
Quarter: 2009Q4

REPORT INFORMATION
  Report Type: 
  Country: None (occurrence: None)
  Receive Date: 20091210
  Receipt Date: 20090414
  Transmission Date: 20100525
  Serious: Yes (Other)
  Sender: FDA-Public Use
  Company Number: CIP09000930

PATIENT
  Age: 49 Year
  Sex: Female

DRUGS (4)
  1. ACTONEL [Suspect]
     Dosage: 150 MG ONCE ONLY, ORAL
     Route: 048
     Dates: start: 20090403, end: 20090403
  2. ALL OTHER THERAPEUTIC PRODUCTS [Concomitant]
  3. VICODIN [Concomitant]
  4. FLEXERIL /00428402/ (CYCLOBENZAPRINE HYDROCHLORIDE) [Concomitant]

REACTIONS (7)
  - ACTIVITIES OF DAILY LIVING IMPAIRED [None]
  - ARTHRALGIA [None]
  - BACK PAIN [None]
  - BEDRIDDEN [None]
  - MUSCULOSKELETAL PAIN [None]
  - MYALGIA [None]
  - PAIN IN EXTREMITY [None]
